FAERS Safety Report 24438133 (Version 1)
Quarter: 2024Q4

REPORT INFORMATION
  Report Type: Spontaneous
  Country: US (occurrence: US)
  Receive Date: 20241015
  Receipt Date: 20241015
  Transmission Date: 20250115
  Serious: No
  Sender: BAYER HEALTHCARE LLC
  Company Number: US-BAYER-2024A146157

PATIENT
  Age: 88 Year

DRUGS (2)
  1. MIRALAX [Suspect]
     Active Substance: POLYETHYLENE GLYCOL 3350
     Indication: Gastrointestinal disorder
     Dosage: 1 MESURED CAP WITH 8 OZ OF WATER
     Route: 048
     Dates: start: 202409, end: 20241014
  2. METAMIZOL [Concomitant]
     Active Substance: METAMIZOLE SODIUM

REACTIONS (3)
  - Drug ineffective [Not Recovered/Not Resolved]
  - Inappropriate schedule of product administration [None]
  - Incorrect product administration duration [None]

NARRATIVE: CASE EVENT DATE: 20240101
